FAERS Safety Report 4462641-5 (Version None)
Quarter: 2004Q3

REPORT INFORMATION
  Report Type: 
  Country: None (occurrence: None)
  Receive Date: 20040929
  Receipt Date: 20040913
  Transmission Date: 20050211
  Serious: Yes (Death, Hospitalization, Other)
  Sender: FDA-Public Use
  Company Number: US-JNJFOC-20040603887

PATIENT
  Age: 22 Month
  Sex: Male
  Weight: 12 kg

DRUGS (3)
  1. TYLENOL [Suspect]
     Indication: VIRAL INFECTION
     Dosage: 750 MG, 1 IN 4 HOUR, ORAL
     Route: 048
     Dates: start: 20030315
  2. PHENERGAN (SUPPOSITORY) PROMETHAZINE HYDROCHLORIDE [Concomitant]
  3. IBUPROFEN [Concomitant]

REACTIONS (6)
  - EYELID FUNCTION DISORDER [None]
  - HEPATIC FAILURE [None]
  - HEPATOMEGALY [None]
  - LETHARGY [None]
  - MEDICATION ERROR [None]
  - OVERDOSE [None]
